FAERS Safety Report 7497577-9 (Version None)
Quarter: 2011Q2

REPORT INFORMATION
  Report Type: 
  Country: None (occurrence: None)
  Receive Date: 20110523
  Receipt Date: 20110516
  Transmission Date: 20111010
  Serious: Yes (Hospitalization, Congenital Anomaly, Other)
  Sender: FDA-Public Use
  Company Number: US-PFIZER INC-2011105395

PATIENT
  Sex: Male

DRUGS (1)
  1. SERTRALINE HYDROCHLORIDE [Suspect]
     Dosage: 100MG HALF TAB 1XDAILY FOR A WEEK AND THEN 1 TAB DAILY
     Route: 064
     Dates: start: 20080820

REACTIONS (18)
  - DRUG EXPOSURE DURING PREGNANCY [None]
  - VENTRICULAR HYPERTROPHY [None]
  - PYREXIA [None]
  - CONJUNCTIVITIS INFECTIVE [None]
  - TRICUSPID VALVE INCOMPETENCE [None]
  - CONGESTIVE CARDIOMYOPATHY [None]
  - PHARYNGITIS STREPTOCOCCAL [None]
  - CARDIAC FAILURE CONGESTIVE [None]
  - HEART SOUNDS ABNORMAL [None]
  - LUNG DISORDER [None]
  - AORTIC STENOSIS [None]
  - ATRIAL SEPTAL DEFECT [None]
  - MITRAL VALVE INCOMPETENCE [None]
  - RESPIRATORY DISTRESS [None]
  - HYPOPHAGIA [None]
  - DEHYDRATION [None]
  - ASTHMA [None]
  - LEUKOPENIA [None]
